FAERS Safety Report 18398518 (Version 2)
Quarter: 2020Q4

REPORT INFORMATION
  Report Type: Report from Study
  Country: US (occurrence: US)
  Receive Date: 20201019
  Receipt Date: 20201105
  Transmission Date: 20210114
  Serious: Yes (Hospitalization, Other)
  Sender: FDA-Public Use
  Company Number: US-GILEAD-2020-0499860

PATIENT
  Age: 10 Year
  Sex: Female

DRUGS (27)
  1. MONTELUKAST [Concomitant]
     Active Substance: MONTELUKAST SODIUM
  2. ONDANSETRON [Concomitant]
     Active Substance: ONDANSETRON
  3. PULMOZYME [Concomitant]
     Active Substance: DORNASE ALFA
  4. SODIUM CHLORIDE. [Concomitant]
     Active Substance: SODIUM CHLORIDE
  5. SUCRALFATE. [Concomitant]
     Active Substance: SUCRALFATE
  6. AZTREONAM LYSINE [Suspect]
     Active Substance: AZTREONAM LYSINE
     Indication: CYSTIC FIBROSIS LUNG
     Dosage: 75 MG, TID
     Route: 055
     Dates: start: 20191002
  7. AZITHROMYCIN ANHYDROUS. [Concomitant]
     Active Substance: AZITHROMYCIN ANHYDROUS
  8. BUDESONIDE. [Concomitant]
     Active Substance: BUDESONIDE
  9. LORATADINE. [Concomitant]
     Active Substance: LORATADINE
  10. PERTZYE [Concomitant]
     Active Substance: PANCRELIPASE AMYLASE\PANCRELIPASE LIPASE\PANCRELIPASE PROTEASE
  11. PROAIR HFA [Concomitant]
     Active Substance: ALBUTEROL SULFATE
  12. PROMETHAZINE [Concomitant]
     Active Substance: PROMETHAZINE HYDROCHLORIDE
  13. SMZ-TMP [Concomitant]
     Active Substance: SULFAMETHOXAZOLE\TRIMETHOPRIM
  14. ALBUTEROL [SALBUTAMOL] [Concomitant]
     Active Substance: ALBUTEROL
     Dosage: UNK
  15. DEKAS PLUS [Concomitant]
  16. POLYETHYLENE GLYCOL [MACROGOL] [Concomitant]
     Active Substance: POLYETHYLENE GLYCOLS
  17. VITAMIN D3 [Concomitant]
     Active Substance: CHOLECALCIFEROL
  18. FLUTICASONE. [Concomitant]
     Active Substance: FLUTICASONE
  19. SINGULAIR [Concomitant]
     Active Substance: MONTELUKAST SODIUM
  20. CULTURELLE [Concomitant]
     Active Substance: LACTOBACILLUS RHAMNOSUS
  21. ERYTHROMYCIN. [Concomitant]
     Active Substance: ERYTHROMYCIN
  22. IBUPROFEN. [Concomitant]
     Active Substance: IBUPROFEN
  23. LIDO/PRILOCAINE [Concomitant]
  24. HYOSCYAMINE. [Concomitant]
     Active Substance: HYOSCYAMINE
  25. MEGESTROL ACETATE. [Concomitant]
     Active Substance: MEGESTROL ACETATE
  26. BETHKIS [Concomitant]
     Active Substance: TOBRAMYCIN
  27. PANTOPRAZOLE [Concomitant]
     Active Substance: PANTOPRAZOLE

REACTIONS (2)
  - Sinus operation [Recovered/Resolved]
  - Pneumonia [Recovered/Resolved]

NARRATIVE: CASE EVENT DATE: 20200909
